FAERS Safety Report 20630574 (Version 2)
Quarter: 2022Q2

REPORT INFORMATION
  Report Type: Spontaneous
  Country: CH (occurrence: CH)
  Receive Date: 20220324
  Receipt Date: 20220407
  Transmission Date: 20220720
  Serious: Yes (Other)
  Sender: FDA-Public Use
  Company Number: CH-TEVA-2022-CH-2018954

PATIENT
  Age: 7 Decade
  Sex: Male

DRUGS (4)
  1. CIPROFLOXACIN [Suspect]
     Active Substance: CIPROFLOXACIN
     Indication: Urosepsis
     Route: 065
  2. IPILIMUMAB [Suspect]
     Active Substance: IPILIMUMAB
     Indication: Metastatic malignant melanoma
     Dosage: RECEIVED 3 DOSES
     Route: 065
     Dates: start: 201704, end: 201705
  3. NIVOLUMAB [Suspect]
     Active Substance: NIVOLUMAB
     Indication: Metastatic malignant melanoma
     Dosage: RECEIVED 3 DOSES BETWEEN APRIL AND MAY 2017; RECEIVED 29 DOSES BETWEEN AUGUST 2017 AND OCTOBER 2018
     Route: 065
     Dates: start: 201704, end: 201810
  4. PREDNISONE [Suspect]
     Active Substance: PREDNISONE
     Indication: Serositis
     Dosage: 20 MILLIGRAM DAILY;
     Route: 065

REACTIONS (7)
  - Hepatitis [Unknown]
  - Vitiligo [Unknown]
  - Cholangitis [Unknown]
  - Sinusitis [Unknown]
  - Serositis [Unknown]
  - Arthritis [Unknown]
  - Muscle rupture [Recovering/Resolving]
